FAERS Safety Report 9754137 (Version 1)
Quarter: 2013Q4

REPORT INFORMATION
  Report Type: Spontaneous
  Country: FR (occurrence: FR)
  Receive Date: 20131213
  Receipt Date: 20131213
  Transmission Date: 20140711
  Serious: Yes (Other)
  Sender: FDA-Public Use
  Company Number: FR-BRISTOL-MYERS SQUIBB COMPANY-19887041

PATIENT
  Age: 26 Year
  Sex: Male

DRUGS (2)
  1. ABILIFY TABS 10 MG [Suspect]
     Indication: DELUSION
     Route: 048
  2. SERESTA [Concomitant]
     Route: 048

REACTIONS (3)
  - Disinhibition [Not Recovered/Not Resolved]
  - Agitation [Recovered/Resolved]
  - Delirium [Not Recovered/Not Resolved]
